FAERS Safety Report 6984942-9 (Version None)
Quarter: 2010Q3

REPORT INFORMATION
  Report Type: 
  Country: None (occurrence: None)
  Receive Date: 20100915
  Receipt Date: 20100903
  Transmission Date: 20110219
  Serious: Yes (Death, Hospitalization, Other)
  Sender: FDA-Public Use
  Company Number: US-ELI_LILLY_AND_COMPANY-US201009001475

PATIENT
  Sex: Male

DRUGS (7)
  1. CYMBALTA [Suspect]
     Indication: DIABETIC NEUROPATHY
     Dosage: 120 MG, DAILY (1/D)
     Dates: end: 20091228
  2. PROZAC [Suspect]
     Indication: DEPRESSION
     Dosage: 40 MG, DAILY (1/D)
     Dates: end: 20091228
  3. LISINOPRIL [Concomitant]
  4. OXYCONTIN [Concomitant]
  5. DARVON COMPOUND [Concomitant]
  6. OXYCODONE [Concomitant]
  7. INSULIN [Concomitant]

REACTIONS (8)
  - AMMONIA INCREASED [None]
  - BLOOD PRESSURE ABNORMAL [None]
  - COMMUNICATION DISORDER [None]
  - CONFUSIONAL STATE [None]
  - DEATH [None]
  - DYSPNOEA [None]
  - HEPATIC NEOPLASM [None]
  - PANCREATITIS [None]
